FAERS Safety Report 6557087-X (Version None)
Quarter: 2010Q1

REPORT INFORMATION
  Report Type: 
  Country: None (occurrence: None)
  Receive Date: 20100128
  Receipt Date: 20100118
  Transmission Date: 20100710
  Serious: Yes (Other)
  Sender: FDA-Public Use
  Company Number: IT-AMGEN-US379501

PATIENT
  Sex: Female

DRUGS (2)
  1. ENBREL [Suspect]
     Indication: RHEUMATOID ARTHRITIS
     Dosage: 50 MG WEEKLY
     Route: 058
     Dates: start: 20080625, end: 20090715
  2. PREDNISONE [Concomitant]
     Dosage: 5 MG
     Route: 065

REACTIONS (1)
  - VENOUS ANGIOMA OF BRAIN [None]
